FAERS Safety Report 18309334 (Version 2)
Quarter: 2020Q4

REPORT INFORMATION
  Report Type: Spontaneous
  Country: PL (occurrence: PL)
  Receive Date: 20200925
  Receipt Date: 20201109
  Transmission Date: 20210113
  Serious: Yes (Other)
  Sender: FDA-Public Use
  Company Number: PL-AMGEN-POLSP2020152178

PATIENT
  Age: 62 Year
  Sex: Male

DRUGS (8)
  1. ACYCLOVIR [ACICLOVIR] [Concomitant]
     Active Substance: ACYCLOVIR
     Dosage: 400 MILLIGRAM
     Route: 048
  2. BLINCYTO [Suspect]
     Active Substance: BLINATUMOMAB
     Indication: B PRECURSOR TYPE ACUTE LEUKAEMIA
     Dosage: 9 MICROGRAM PER HOUR
     Route: 065
     Dates: start: 20200702
  3. BLINCYTO [Suspect]
     Active Substance: BLINATUMOMAB
     Dosage: 28 MICROGRAM PER HOUR
     Route: 065
     Dates: start: 20200713
  4. LEVOFLOXACIN. [Concomitant]
     Active Substance: LEVOFLOXACIN
     Dosage: 500 MILLIGRAM
     Route: 048
  5. POSACONAZOLE [Concomitant]
     Active Substance: POSACONAZOLE
     Dosage: 5 MILLILITER
     Route: 048
  6. DEXAMETHASONE. [Concomitant]
     Active Substance: DEXAMETHASONE
  7. ARA-C [Concomitant]
     Active Substance: CYTARABINE
     Dosage: UNK
     Dates: start: 20191009, end: 20191022
  8. MTX [METHOTREXATE] [Concomitant]
     Active Substance: METHOTREXATE SODIUM
     Dosage: UNK
     Dates: start: 20191009, end: 20191022

REACTIONS (11)
  - Psychomotor retardation [Unknown]
  - Aphasia [Unknown]
  - Gait inability [Unknown]
  - Balance disorder [Unknown]
  - Cytopenia [Unknown]
  - Intention tremor [Unknown]
  - Pyrexia [Unknown]
  - Altered state of consciousness [Unknown]
  - Resting tremor [Unknown]
  - Enterococcal sepsis [Unknown]
  - Escherichia sepsis [Unknown]

NARRATIVE: CASE EVENT DATE: 202007
